FAERS Safety Report 9694293 (Version 1)
Quarter: 2013Q4

REPORT INFORMATION
  Report Type: Spontaneous
  Country: US (occurrence: US)
  Receive Date: 20131118
  Receipt Date: 20131118
  Transmission Date: 20140711
  Serious: Yes (Death, Hospitalization, Disabling, Other)
  Sender: FDA-Public Use
  Company Number: US-MERCK-1311USA005608

PATIENT
  Sex: Male

DRUGS (1)
  1. JANUVIA [Suspect]
     Indication: DIABETES MELLITUS
     Dosage: 100MG /^ONE TABLET ONCE DAILY^
     Route: 048
     Dates: start: 201211, end: 20131002

REACTIONS (9)
  - Aspiration [Fatal]
  - Leg amputation [Not Recovered/Not Resolved]
  - Sepsis [Not Recovered/Not Resolved]
  - Gangrene [Not Recovered/Not Resolved]
  - Leg amputation [Not Recovered/Not Resolved]
  - Intestinal perforation [Not Recovered/Not Resolved]
  - Blood glucose abnormal [Not Recovered/Not Resolved]
  - Poisoning [Not Recovered/Not Resolved]
  - Skin ulcer [Unknown]
